FAERS Safety Report 17075511 (Version 2)
Quarter: 2020Q1

REPORT INFORMATION
  Report Type: Spontaneous
  Country: US (occurrence: US)
  Receive Date: 20191126
  Receipt Date: 20200219
  Transmission Date: 20200409
  Serious: No
  Sender: FDA-Public Use
  Company Number: US-PFIZER INC-2019507363

PATIENT
  Age: 82 Year
  Sex: Male

DRUGS (1)
  1. SILDENAFIL CITRATE. [Suspect]
     Active Substance: SILDENAFIL CITRATE
     Dosage: 20 MG, UNK(TAKE 2-5 PO UT DIET )
     Route: 048

REACTIONS (1)
  - Drug hypersensitivity [Unknown]
